FAERS Safety Report 23142297 (Version 1)
Quarter: 2023Q4

REPORT INFORMATION
  Report Type: Spontaneous
  Country: CA (occurrence: None)
  Receive Date: 20231103
  Receipt Date: 20231103
  Transmission Date: 20240109
  Serious: Yes (Other)
  Sender: FDA-Public Use
  Company Number: CA-PFIZER INC-202300352334

PATIENT
  Age: 37 Year
  Sex: Female

DRUGS (3)
  1. METHOTREXATE [Suspect]
     Active Substance: METHOTREXATE
     Indication: Rheumatoid arthritis
     Dates: start: 20201119, end: 202103
  2. FOLIC ACID [Suspect]
     Active Substance: FOLIC ACID
     Indication: Rheumatoid arthritis
     Dates: start: 20201119, end: 202103
  3. SULFASALAZINE [Concomitant]
     Active Substance: SULFASALAZINE
     Indication: Rheumatoid arthritis
     Dosage: FREQUENCY: UNKNOWN
     Dates: start: 20200911, end: 20201119

REACTIONS (4)
  - Maternal exposure during pregnancy [Unknown]
  - Abortion [Unknown]
  - Therapeutic product effect decreased [Unknown]
  - Joint swelling [Unknown]
